FAERS Safety Report 11910119 (Version 6)
Quarter: 2016Q1

REPORT INFORMATION
  Report Type: Spontaneous
  Country: PR (occurrence: PR)
  Receive Date: 20160112
  Receipt Date: 20160330
  Transmission Date: 20160526
  Serious: No
  Sender: FDA-Public Use
  Company Number: PR-PFIZER INC-2015349732

PATIENT
  Age: 64 Year
  Sex: Male

DRUGS (5)
  1. OMEPRAZOLE. [Concomitant]
     Active Substance: OMEPRAZOLE
     Dosage: 20 MG, UNK
  2. SUTENT [Suspect]
     Active Substance: SUNITINIB MALATE
     Indication: RENAL CANCER STAGE IV
     Dosage: 50 MG, CYCLIC (DAILY X 4 WEEKS, THEN 2 WEEKS OFF)
     Route: 048
     Dates: start: 20151120
  3. PREPARATION H NOS [Concomitant]
     Active Substance: COCOA BUTTER\PETROLATUM\PHENYLEPHRINE HYDROCHLORIDE\PHENYLEPHRINE HYDROCHLORIDE OR MINERAL OIL
     Dosage: UNK
  4. SUTENT [Suspect]
     Active Substance: SUNITINIB MALATE
     Dosage: 50 MG, CYCLIC (28 DAYS ON/14 DAYS OFF)
     Dates: start: 20151120
  5. AVAPRO [Concomitant]
     Active Substance: IRBESARTAN
     Dosage: 150 MG, UNK

REACTIONS (19)
  - Dysgeusia [Unknown]
  - Abdominal discomfort [Unknown]
  - Pain in extremity [Unknown]
  - Dry skin [Unknown]
  - Weight decreased [Unknown]
  - Decreased appetite [Unknown]
  - Skin hypertrophy [Unknown]
  - Asthenia [Unknown]
  - Oral discomfort [Unknown]
  - Gingival pain [Unknown]
  - Palmar-plantar erythrodysaesthesia syndrome [Unknown]
  - Anorectal discomfort [Unknown]
  - Back pain [Unknown]
  - Throat irritation [Unknown]
  - Skin disorder [Unknown]
  - Oral pain [Unknown]
  - Glossodynia [Recovered/Resolved]
  - Temperature intolerance [Unknown]
  - Diarrhoea [Unknown]

NARRATIVE: CASE EVENT DATE: 2015
